FAERS Safety Report 12115373 (Version 1)
Quarter: 2016Q1

REPORT INFORMATION
  Report Type: Spontaneous
  Country: JP (occurrence: JP)
  Receive Date: 20160225
  Receipt Date: 20160225
  Transmission Date: 20160526
  Serious: Yes (Death, Other)
  Sender: FDA-Public Use
  Company Number: JP-TEVA-637169ISR

PATIENT
  Age: 71 Year
  Sex: Female

DRUGS (2)
  1. PIPERACILLIN [Suspect]
     Active Substance: PIPERACILLIN
     Indication: PYREXIA
     Route: 065
  2. CEFTRIAXONE. [Suspect]
     Active Substance: CEFTRIAXONE
     Indication: PYREXIA
     Route: 065

REACTIONS (5)
  - Disseminated intravascular coagulation [Fatal]
  - Septic shock [Unknown]
  - Toxic epidermal necrolysis [Unknown]
  - Seizure [Unknown]
  - Intestinal haemorrhage [Fatal]
